FAERS Safety Report 5526503-4 (Version None)
Quarter: 2007Q4

REPORT INFORMATION
  Report Type: 
  Country: None (occurrence: None)
  Receive Date: 20071121
  Receipt Date: 20071121
  Transmission Date: 20080405
  Serious: Yes (Hospitalization)
  Sender: FDA-Public Use
  Company Number: None

PATIENT
  Sex: Female
  Weight: 68.9467 kg

DRUGS (1)
  1. DILTIAZEM [Suspect]
     Indication: ATRIAL FIBRILLATION
     Dosage: 120 MG DAILY PO
     Route: 048
     Dates: start: 20071021, end: 20071113

REACTIONS (5)
  - ARRHYTHMIA [None]
  - HEART RATE INCREASED [None]
  - HEART RATE IRREGULAR [None]
  - PALPITATIONS [None]
  - PHARMACEUTICAL PRODUCT COMPLAINT [None]
